FAERS Safety Report 25948184 (Version 1)
Quarter: 2025Q4

REPORT INFORMATION
  Report Type: Spontaneous
  Country: EU (occurrence: EU)
  Receive Date: 20251022
  Receipt Date: 20251022
  Transmission Date: 20260118
  Serious: Yes (Hospitalization)
  Sender: ALEXION PHARMACEUTICALS
  Company Number: None

PATIENT
  Age: 61 Year
  Sex: Female
  Weight: 72 kg

DRUGS (1)
  1. IMFINZI [Suspect]
     Active Substance: DURVALUMAB
     Indication: Small cell lung cancer
     Dosage: 1 CYCLE TOUTES LES 4 SEMAINES
     Dates: start: 20250513, end: 20250918

REACTIONS (1)
  - Paraneoplastic neurological syndrome [Not Recovered/Not Resolved]

NARRATIVE: CASE EVENT DATE: 20250821
